FAERS Safety Report 22981583 (Version 9)
Quarter: 2024Q1

REPORT INFORMATION
  Report Type: Spontaneous
  Country: CA (occurrence: CA)
  Receive Date: 20230925
  Receipt Date: 20240326
  Transmission Date: 20240410
  Serious: Yes (Hospitalization)
  Sender: FDA-Public Use
  Company Number: CA-PFIZER INC-202300263110

PATIENT
  Age: 71 Year
  Sex: Female

DRUGS (2)
  1. RUXIENCE [Suspect]
     Active Substance: RITUXIMAB-PVVR
     Indication: Neuromyelitis optica spectrum disorder
     Dosage: 1000 MG EVERY 2 WEEKS (EVERY 6 MONTHS)
     Route: 042
     Dates: start: 20230810, end: 20231012
  2. RUXIENCE [Suspect]
     Active Substance: RITUXIMAB-PVVR
     Indication: Anti-aquaporin-4 antibody
     Dosage: 1000 MG AFTER 9 WEEKS (SUPPOSED TO RECIEVE DAY 1 AND DAY 15)
     Route: 042
     Dates: start: 20231012

REACTIONS (4)
  - Condition aggravated [Not Recovered/Not Resolved]
  - Urinary tract infection [Recovered/Resolved]
  - Off label use [Unknown]
  - Product dose omission issue [Unknown]

NARRATIVE: CASE EVENT DATE: 20230801
